FAERS Safety Report 15695597 (Version 7)
Quarter: 2019Q4

REPORT INFORMATION
  Report Type: Spontaneous
  Country: US (occurrence: US)
  Receive Date: 20181206
  Receipt Date: 20191202
  Transmission Date: 20200122
  Serious: Yes (Hospitalization, Other)
  Sender: FDA-Public Use
  Company Number: US-PFIZER INC-2018496433

PATIENT
  Age: 89 Year
  Sex: Female
  Weight: 54 kg

DRUGS (9)
  1. LEVOTHYROXINE. [Concomitant]
     Active Substance: LEVOTHYROXINE
     Indication: THYROID DISORDER
     Dosage: UNK
  2. ECOTRIN [Concomitant]
     Active Substance: ASPIRIN
     Dosage: UNK
  3. PRESERVISION [Concomitant]
     Active Substance: MINERALS\VITAMINS
     Indication: DRY AGE-RELATED MACULAR DEGENERATION
     Dosage: UNK
  4. TRIAMTERENE. [Concomitant]
     Active Substance: TRIAMTERENE
     Dosage: UNK
  5. IBRANCE [Suspect]
     Active Substance: PALBOCICLIB
     Indication: BREAST CANCER FEMALE
     Dosage: 100 MG, 1X/DAY [EVERY MORNING]
     Route: 048
  6. VITAMIN D3 [Concomitant]
     Active Substance: CHOLECALCIFEROL
     Dosage: UNK
  7. METOPROLOL. [Concomitant]
     Active Substance: METOPROLOL
     Dosage: UNK
  8. GLIMEPIRIDE. [Concomitant]
     Active Substance: GLIMEPIRIDE
     Dosage: UNK
  9. LETROZOLE. [Concomitant]
     Active Substance: LETROZOLE
     Indication: METASTASIS
     Dosage: UNK

REACTIONS (7)
  - Lacrimation increased [Recovered/Resolved]
  - Memory impairment [Not Recovered/Not Resolved]
  - Rhinorrhoea [Not Recovered/Not Resolved]
  - Hypoacusis [Unknown]
  - Malaise [Not Recovered/Not Resolved]
  - Dry age-related macular degeneration [Unknown]
  - Oropharyngeal discomfort [Unknown]

NARRATIVE: CASE EVENT DATE: 201904
